FAERS Safety Report 8539929-1 (Version None)
Quarter: 2012Q3

REPORT INFORMATION
  Report Type: 
  Country: None (occurrence: None)
  Receive Date: 20120726
  Receipt Date: 20120718
  Transmission Date: 20120928
  Serious: Yes (Hospitalization)
  Sender: FDA-Public Use
  Company Number: DE-ALEXION PHARMACEUTICALS INC.-A201201090

PATIENT
  Sex: Female

DRUGS (10)
  1. BISOPROLOL FUMARATE [Concomitant]
     Indication: HYPERTENSION
     Dosage: 5 MG, UNK
  2. TORSEMIDE [Concomitant]
     Indication: HYPERTENSION
     Dosage: 10 MG, UNK
     Dates: end: 20120523
  3. GABAPENTIN [Concomitant]
     Indication: PAIN
     Dosage: 2 X 300 MG
  4. ACETYLSALICYLIC ACID SRT [Concomitant]
     Indication: CORONARY ARTERY DISEASE
     Dosage: 100 MG, UNK
  5. MOXONIDIN [Concomitant]
     Indication: HYPERTENSION
     Dosage: 0.2 MG, UNK
     Dates: end: 20120523
  6. SOLIRIS [Suspect]
     Indication: PAROXYSMAL NOCTURNAL HAEMOGLOBINURIA
     Dosage: UNK
     Route: 042
     Dates: start: 20100101
  7. METAMIZOLE [Concomitant]
     Indication: PAIN
     Dosage: 3 X 300 MG
  8. RAMIPRIL [Concomitant]
     Indication: HYPERTENSION
     Dosage: 2 X 2.5 MG
  9. SOLIRIS [Suspect]
     Dosage: 900 MG, Q2W
     Route: 042
     Dates: start: 20120531
  10. HYDROCHLOROTHIAZIDE [Concomitant]
     Indication: HYPERTENSION
     Dosage: 12.5 MG

REACTIONS (2)
  - PANCREATITIS ACUTE [None]
  - RENAL FAILURE ACUTE [None]
